FAERS Safety Report 4318617-1 (Version None)
Quarter: 2004Q1

REPORT INFORMATION
  Report Type: 
  Country: None (occurrence: None)
  Receive Date: 20040315
  Receipt Date: 20040315
  Transmission Date: 20041129
  Serious: Yes (Life-Threatening)
  Sender: FDA-Public Use
  Company Number: None

PATIENT
  Sex: Female
  Weight: 68 kg

DRUGS (4)
  1. TAXOL [Suspect]
     Indication: NON-SMALL CELL LUNG CANCER
     Dosage: IV 80 MG/M2
     Route: 042
     Dates: start: 20040305
  2. EPINEPHRINE [Concomitant]
  3. O2 [Concomitant]
  4. NEBS [Concomitant]

REACTIONS (2)
  - DYSPNOEA [None]
  - FLUSHING [None]
